FAERS Safety Report 16729312 (Version 1)
Quarter: 2019Q3

REPORT INFORMATION
  Report Type: Spontaneous
  Country: CN (occurrence: CN)
  Receive Date: 20190822
  Receipt Date: 20190822
  Transmission Date: 20191005
  Serious: Yes (Other)
  Sender: FDA-Public Use
  Company Number: CN-ASTRAZENECA-2019SF17933

PATIENT
  Age: 22588 Day
  Sex: Female
  Weight: 67 kg

DRUGS (5)
  1. ACARBOSE. [Concomitant]
     Active Substance: ACARBOSE
     Dates: end: 20190722
  2. FORXIGA [Suspect]
     Active Substance: DAPAGLIFLOZIN
     Indication: DIABETIC VASCULAR DISORDER
     Route: 048
     Dates: start: 20190722, end: 20190728
  3. METFORMIN HYDROCHLORIDE. [Concomitant]
     Active Substance: METFORMIN HYDROCHLORIDE
  4. HYPOGLYCEMIC DRUGS [Concomitant]
     Active Substance: UNSPECIFIED INGREDIENT
     Dates: end: 20190722
  5. INSULIN ASPART [Concomitant]
     Active Substance: INSULIN ASPART
     Dates: end: 20190722

REACTIONS (6)
  - Chest discomfort [Recovered/Resolved]
  - Diabetes mellitus inadequate control [Recovered/Resolved]
  - Vomiting [Recovered/Resolved]
  - Ketoacidosis [Recovered/Resolved]
  - Asthenia [Recovered/Resolved]
  - Nausea [Recovered/Resolved]

NARRATIVE: CASE EVENT DATE: 20190725
